FAERS Safety Report 15494165 (Version 1)
Quarter: 2018Q4

REPORT INFORMATION
  Report Type: Spontaneous
  Country: US (occurrence: US)
  Receive Date: 20181004
  Receipt Date: 20181004
  Transmission Date: 20190205
  Serious: Yes (Hospitalization)
  Sender: FDA-Public Use
  Company Number: None

PATIENT
  Age: 64 Year
  Sex: Male
  Weight: 99 kg

DRUGS (1)
  1. BUPROPION. [Suspect]
     Active Substance: BUPROPION
     Indication: SMOKING CESSATION THERAPY
     Route: 048
     Dates: start: 20180612, end: 20180718

REACTIONS (7)
  - Erythema multiforme [None]
  - Stevens-Johnson syndrome [None]
  - Sunburn [None]
  - Burns second degree [None]
  - Polymorphic light eruption [None]
  - Photosensitivity reaction [None]
  - Drug eruption [None]

NARRATIVE: CASE EVENT DATE: 20180703
